FAERS Safety Report 10657202 (Version 1)
Quarter: 2014Q4

REPORT INFORMATION
  Report Type: Spontaneous
  Country: US (occurrence: None)
  Receive Date: 20141215
  Receipt Date: 20141215
  Transmission Date: 20150529
  Serious: Yes (Other)
  Sender: FDA-Public Use
  Company Number: US-H14001-14-01760

PATIENT
  Age: 40 Year
  Sex: Female

DRUGS (1)
  1. METOPROLOL [Suspect]
     Active Substance: METOPROLOL
     Indication: ISCHAEMIC CARDIOMYOPATHY

REACTIONS (3)
  - Rash pruritic [None]
  - Angioedema [None]
  - Rash vesicular [None]
